FAERS Safety Report 4523851-1 (Version None)
Quarter: 2005Q1

REPORT INFORMATION
  Report Type: 
  Country: None (occurrence: None)
  Receive Date: 20041029
  Receipt Date: 20040929
  Transmission Date: 20050727
  Serious: No
  Sender: FDA-Public Use
  Company Number: 200417435US

PATIENT
  Age: 77 Year
  Sex: Female

DRUGS (6)
  1. KETEK [Suspect]
     Indication: SINUSITIS
     Dosage: 400 MG BID PO
     Route: 048
  2. FOSAMAX [Concomitant]
  3. DIOVAN [Concomitant]
  4. ZOLOFT [Concomitant]
  5. VITAMINS NOS (VITAMINS NOS) [Concomitant]
  6. SEVERAL OTHER MEDICATIONS [Concomitant]

REACTIONS (1)
  - TONGUE BLACK HAIRY [None]
